FAERS Safety Report 13055100 (Version 8)
Quarter: 2020Q1

REPORT INFORMATION
  Report Type: Spontaneous
  Country: US (occurrence: US)
  Receive Date: 20161222
  Receipt Date: 20200319
  Transmission Date: 20200409
  Serious: Yes (Other)
  Sender: FDA-Public Use
  Company Number: US-PFIZER INC-2016591896

PATIENT
  Age: 64 Year
  Sex: Female
  Weight: 104.31 kg

DRUGS (5)
  1. REVATIO [Suspect]
     Active Substance: SILDENAFIL CITRATE
     Indication: PULMONARY HYPERTENSION
     Dosage: 20 MG, 3X/DAY
     Route: 048
     Dates: start: 2007
  2. TRAMADOL. [Concomitant]
     Active Substance: TRAMADOL
     Indication: PAIN
     Dosage: 10 MG, UNK (AFTER HYDROCODONE BITARTRATE, PARACETAMOL; TAKE ANOTHER IN THE EVENING IF PAIN IS GREAT)
  3. REVATIO [Suspect]
     Active Substance: SILDENAFIL CITRATE
     Dosage: 40 MG, 3X/DAY (2 TABLETS, 3 TIMES A DAY)
     Route: 048
     Dates: start: 2008
  4. HYDROCODONE/ACETAMINOPHEN [Concomitant]
     Active Substance: ACETAMINOPHEN\HYDROCODONE
     Dosage: 1 DF, 2X/DAY (ONE IN THE MORNING, THEN ANOTHER AROUND FOUR OR FIVE)
  5. HYDROCODONE/ACETAMINOPHEN [Concomitant]
     Active Substance: ACETAMINOPHEN\HYDROCODONE
     Indication: PAIN
     Dosage: 1 DF, 4X/DAY (HYDROCODONE 7.5/ PARACETAMOL 325)
     Route: 048

REACTIONS (13)
  - Influenza [Unknown]
  - Influenza [Unknown]
  - Joint swelling [Unknown]
  - Stress [Unknown]
  - Malaise [Recovered/Resolved]
  - Nausea [Unknown]
  - Memory impairment [Recovering/Resolving]
  - Myocardial infarction [Unknown]
  - Off label use [Unknown]
  - Headache [Recovered/Resolved]
  - Body height decreased [Unknown]
  - Weight decreased [Unknown]
  - Mobility decreased [Unknown]

NARRATIVE: CASE EVENT DATE: 2008
